FAERS Safety Report 20310038 (Version 2)
Quarter: 2022Q1

REPORT INFORMATION
  Report Type: Report from Study
  Country: AU (occurrence: AU)
  Receive Date: 20220107
  Receipt Date: 20220119
  Transmission Date: 20220423
  Serious: No
  Sender: FDA-Public Use
  Company Number: AU-NOVARTISPH-PHHY2019AU128374

PATIENT
  Age: 21 Year
  Sex: Female
  Weight: 104 kg

DRUGS (7)
  1. CANAKINUMAB [Suspect]
     Active Substance: CANAKINUMAB
     Indication: Autoinflammatory disease
     Dosage: 150 MG, UNK
     Route: 058
     Dates: start: 20190325
  2. CANAKINUMAB [Suspect]
     Active Substance: CANAKINUMAB
     Dosage: 150 MG, UNK
     Route: 058
     Dates: start: 20190729
  3. CANAKINUMAB [Suspect]
     Active Substance: CANAKINUMAB
     Dosage: 150 MG, Q4W
     Route: 058
  4. MIRENA [Suspect]
     Active Substance: LEVONORGESTREL
     Indication: Contraception
     Dosage: 52 MG, UNK
     Route: 065
     Dates: start: 20190702
  5. GUSELKUMAB [Suspect]
     Active Substance: GUSELKUMAB
     Indication: Autoinflammatory disease
     Dosage: UNK
     Route: 065
  6. SULFASALAZINE [Concomitant]
     Active Substance: SULFASALAZINE
     Indication: Product used for unknown indication
     Dosage: 1 G, BID
     Route: 065
     Dates: start: 20161209
  7. ETHINYL ESTRADIOL\LEVONORGESTREL ACETATE [Concomitant]
     Active Substance: ETHINYL ESTRADIOL\LEVONORGESTREL ACETATE
     Indication: Product used for unknown indication
     Dosage: 20 ED, OCP
     Route: 048

REACTIONS (5)
  - Pleuritic pain [Unknown]
  - Headache [Unknown]
  - Adenoidal hypertrophy [Unknown]
  - Aspartate aminotransferase increased [Unknown]
  - Alanine aminotransferase increased [Unknown]

NARRATIVE: CASE EVENT DATE: 20190601
